FAERS Safety Report 6315659-1 (Version None)
Quarter: 2009Q3

REPORT INFORMATION
  Report Type: 
  Country: None (occurrence: None)
  Receive Date: 20090818
  Receipt Date: 20090812
  Transmission Date: 20100115
  Serious: Yes (Hospitalization)
  Sender: FDA-Public Use
  Company Number: WAES 0703GRC00008

PATIENT
  Age: 73 Year
  Sex: Male

DRUGS (14)
  1. COZAAR [Suspect]
     Indication: CARDIAC FAILURE
     Dosage: PO ; PO
     Route: 048
     Dates: start: 20041209, end: 20070301
  2. COZAAR [Suspect]
     Indication: CARDIAC FAILURE
     Dosage: PO ; PO
     Route: 048
     Dates: start: 20070301
  3. ALLOPURINOL [Concomitant]
  4. AMIODARONE [Concomitant]
  5. ASPIRIN [Concomitant]
  6. ATORVASTATIN CALCIUM [Concomitant]
  7. CARBAMAZEPINE [Concomitant]
  8. CARVEDILOL [Concomitant]
  9. EPLERENONE [Concomitant]
  10. FUROSEMIDE [Concomitant]
  11. LEVODOPA [Concomitant]
  12. LEVOTHYROXINE SODIUM [Concomitant]
  13. RANITIDINE HC1 [Concomitant]
  14. TIOTROPIUM BROMIDE [Concomitant]

REACTIONS (4)
  - CHOLELITHIASIS [None]
  - LUNG INFECTION [None]
  - MALAISE [None]
  - UPPER RESPIRATORY TRACT INFLAMMATION [None]
